FAERS Safety Report 6637684-3 (Version None)
Quarter: 2010Q1

REPORT INFORMATION
  Report Type: 
  Country: None (occurrence: None)
  Receive Date: 20100317
  Receipt Date: 20100304
  Transmission Date: 20100710
  Serious: Yes (Hospitalization)
  Sender: FDA-Public Use
  Company Number: US-ELI_LILLY_AND_COMPANY-US201003003061

PATIENT
  Age: 16 Year
  Sex: Female

DRUGS (3)
  1. ZYPREXA [Suspect]
     Indication: POST-TRAUMATIC STRESS DISORDER
     Dosage: 30 MG, DAILY (1/D)
  2. LITHIUM CARBONATE [Concomitant]
  3. LAMICTAL CD [Concomitant]

REACTIONS (15)
  - ABNORMAL BEHAVIOUR [None]
  - AGGRESSION [None]
  - BALANCE DISORDER [None]
  - DIZZINESS [None]
  - DRUG INEFFECTIVE [None]
  - HOMICIDAL IDEATION [None]
  - INCREASED APPETITE [None]
  - OVERDOSE [None]
  - POLLAKIURIA [None]
  - PSYCHOMOTOR HYPERACTIVITY [None]
  - RESTLESSNESS [None]
  - SUICIDAL IDEATION [None]
  - THINKING ABNORMAL [None]
  - THIRST [None]
  - VISUAL IMPAIRMENT [None]
